FAERS Safety Report 20512321 (Version 2)
Quarter: 2022Q1

REPORT INFORMATION
  Report Type: Spontaneous
  Country: NL (occurrence: NL)
  Receive Date: 20220224
  Receipt Date: 20220304
  Transmission Date: 20220423
  Serious: Yes (Death)
  Sender: FDA-Public Use
  Company Number: None

PATIENT
  Sex: Male
  Weight: 1.4 kg

DRUGS (10)
  1. PENTOXIFYLLINE [Suspect]
     Active Substance: PENTOXIFYLLINE
     Indication: Sepsis neonatal
     Dosage: 30 MG/KG IN 6 HOURS (5MG/KG/HOUR) FOR 1 DAY
     Route: 065
     Dates: start: 20220121, end: 20220122
  2. PENTOXIFYLLINE [Suspect]
     Active Substance: PENTOXIFYLLINE
     Indication: Off label use
  3. MORFINE HCL [Concomitant]
     Indication: Product used for unknown indication
     Route: 065
  4. PROPOFOL [Concomitant]
     Active Substance: PROPOFOL
     Indication: Product used for unknown indication
     Dosage: 10 MG/ML (MILLIGRAMS PER MILLILITER)
  5. GENTAMICIN [Concomitant]
     Active Substance: GENTAMICIN
     Indication: Product used for unknown indication
     Route: 065
  6. HEPARINE NATRIUM [Concomitant]
     Indication: Product used for unknown indication
     Route: 065
  7. BENZYLPENICILLINENATRIUM SANDOZ [Concomitant]
     Indication: Product used for unknown indication
     Dosage: INFUSION FLUID, 10000 IU/ML (UNITS PER MILLILITER)
     Route: 065
  8. CAFFEINE [Concomitant]
     Active Substance: CAFFEINE
     Indication: Product used for unknown indication
     Dosage: COFFEE 0 WATER
     Route: 065
  9. CUROSURF [Concomitant]
     Active Substance: PORACTANT ALFA
     Indication: Product used for unknown indication
     Route: 065
  10. PHYTONADIONE [Concomitant]
     Active Substance: PHYTONADIONE
     Indication: Product used for unknown indication
     Route: 065

REACTIONS (2)
  - Intraventricular haemorrhage neonatal [Fatal]
  - Off label use [Unknown]
